FAERS Safety Report 4825248-3 (Version None)
Quarter: 2005Q4

REPORT INFORMATION
  Report Type: 
  Country: None (occurrence: None)
  Receive Date: 20051109
  Receipt Date: 20051109
  Transmission Date: 20060501
  Serious: Yes (Hospitalization)
  Sender: FDA-Public Use
  Company Number: None

PATIENT
  Sex: Female

DRUGS (2)
  1. LAMICTAL [Suspect]
     Indication: CONVULSION
     Dosage: 50 MG   BID   PO
     Route: 048
     Dates: start: 20050831, end: 20050902
  2. TRILEPTAL [Suspect]
     Indication: CONVULSION
     Dosage: 900 MG    BID   PO
     Route: 048
     Dates: start: 20050831, end: 20050902

REACTIONS (1)
  - STEVENS-JOHNSON SYNDROME [None]
